FAERS Safety Report 10057783 (Version 2)
Quarter: 2018Q2

REPORT INFORMATION
  Report Type: Report from Study
  Country: US (occurrence: US)
  Receive Date: 20140404
  Receipt Date: 20180505
  Transmission Date: 20180711
  Serious: Yes (Other)
  Sender: FDA-Public Use
  Company Number: US-ROCHE-1371279

PATIENT

DRUGS (11)
  1. BEVACIZUMAB. [Suspect]
     Active Substance: BEVACIZUMAB
     Indication: COLORECTAL CANCER
     Route: 065
  2. DEXAMETHASONE. [Concomitant]
     Active Substance: DEXAMETHASONE
     Indication: METASTASES TO LIVER
     Route: 065
  3. OXALIPLATIN. [Concomitant]
     Active Substance: OXALIPLATIN
     Route: 065
  4. FLOXURIDINE. [Concomitant]
     Active Substance: FLOXURIDINE
     Indication: METASTASES TO LIVER
     Route: 065
  5. DEXAMETHASONE. [Concomitant]
     Active Substance: DEXAMETHASONE
     Indication: COLORECTAL CANCER METASTATIC
  6. LEUCOVORIN. [Concomitant]
     Active Substance: LEUCOVORIN
     Route: 065
  7. FLOXURIDINE. [Concomitant]
     Active Substance: FLOXURIDINE
     Indication: COLORECTAL CANCER METASTATIC
  8. IRINOTECAN [Concomitant]
     Active Substance: IRINOTECAN
     Route: 065
  9. BEVACIZUMAB. [Suspect]
     Active Substance: BEVACIZUMAB
     Indication: METASTASES TO LIVER
  10. IRINOTECAN [Concomitant]
     Active Substance: IRINOTECAN
     Route: 065
  11. 5-FLUOROURACIL [Concomitant]
     Active Substance: FLUOROURACIL
     Dosage: DOSE: 2000 MG/M2 48 HOURS OF INFUSION
     Route: 065

REACTIONS (12)
  - Abdominal pain [Unknown]
  - Diarrhoea [Unknown]
  - Aspartate aminotransferase [Unknown]
  - White blood cell disorder [Unknown]
  - Haemoglobin abnormal [Unknown]
  - Toxicity to various agents [Unknown]
  - Neurotoxicity [Unknown]
  - Vomiting [Unknown]
  - Blood alkaline phosphatase abnormal [Unknown]
  - Nausea [Unknown]
  - Mucosal inflammation [Unknown]
  - Blood bilirubin abnormal [Unknown]
